FAERS Safety Report 7591040-2 (Version None)
Quarter: 2011Q3

REPORT INFORMATION
  Report Type: 
  Country: None (occurrence: None)
  Receive Date: 20110705
  Receipt Date: 20110630
  Transmission Date: 20111222
  Serious: Yes (Hospitalization, Other)
  Sender: FDA-Public Use
  Company Number: US-PFIZER INC-2011085207

PATIENT
  Sex: Male

DRUGS (9)
  1. ENALAPRIL [Concomitant]
     Indication: CARDIAC DISORDER
     Dosage: UNK
     Dates: start: 20060101, end: 20080101
  2. WELLBUTRIN [Concomitant]
     Indication: DEPRESSION
     Dosage: UNK
     Dates: start: 20020101, end: 20080101
  3. FUROSEMIDE [Concomitant]
     Indication: HYPERTENSION
  4. TRICOR [Concomitant]
     Indication: BLOOD CHOLESTEROL INCREASED
     Dosage: UNK
     Dates: start: 20030101, end: 20080101
  5. NITROGLYCERIN [Concomitant]
     Indication: CARDIAC DISORDER
     Dosage: UNK
     Dates: start: 20020101
  6. LIPITOR [Concomitant]
     Indication: CARDIAC DISORDER
     Dosage: UNK
     Dates: start: 20020101, end: 20080101
  7. CHANTIX [Suspect]
     Indication: SMOKING CESSATION THERAPY
     Dosage: UNK, STARTER KIT AND SAMPLES
     Dates: start: 20071001, end: 20080201
  8. FUROSEMIDE [Concomitant]
     Indication: CARDIAC DISORDER
     Dosage: UNK
     Dates: start: 20060101
  9. POTASSIUM CHLORIDE [Concomitant]
     Indication: CARDIAC DISORDER
     Dosage: UNK
     Dates: start: 20060101

REACTIONS (4)
  - DEPRESSION [None]
  - MAJOR DEPRESSION [None]
  - SUICIDAL IDEATION [None]
  - ANXIETY [None]
